FAERS Safety Report 9391561 (Version 1)
Quarter: 2013Q3

REPORT INFORMATION
  Report Type: Spontaneous
  Country: AT (occurrence: AT)
  Receive Date: 20130709
  Receipt Date: 20130709
  Transmission Date: 20140515
  Serious: Yes (Hospitalization)
  Sender: FDA-Public Use
  Company Number: AT-ASTRAZENECA-2010SE03663

PATIENT
  Age: 51 Year
  Sex: Female
  Weight: 101.8 kg

DRUGS (9)
  1. ATACAND PLUS [Suspect]
     Dosage: 16/12.5 MG DAILY
     Route: 048
  2. SEROQUEL [Suspect]
     Route: 048
     Dates: start: 20090925, end: 20090925
  3. IXEL [Suspect]
     Dates: start: 20090917
  4. IXEL [Suspect]
     Dates: start: 20090918, end: 20090920
  5. IXEL [Suspect]
     Dates: start: 20090921, end: 20090923
  6. IXEL [Suspect]
     Dates: start: 20090924
  7. TRITTICO [Suspect]
     Dates: start: 20090828, end: 20090911
  8. TRITTICO [Suspect]
     Dates: start: 20090912
  9. AMLODIPIN [Suspect]
     Dates: start: 20090908

REACTIONS (1)
  - Syncope [Recovered/Resolved]
